FAERS Safety Report 14046988 (Version 1)
Quarter: 2017Q4

REPORT INFORMATION
  Report Type: Report from Study
  Country: US (occurrence: US)
  Receive Date: 20171005
  Receipt Date: 20171005
  Transmission Date: 20180321
  Serious: Yes (Disabling, Other)
  Sender: FDA-Public Use
  Company Number: US-GILEAD-2017-0293087

PATIENT
  Age: 61 Year
  Sex: Female
  Weight: 128.35 kg

DRUGS (9)
  1. GLIMEPIRIDE. [Concomitant]
     Active Substance: GLIMEPIRIDE
  2. CLOBETASOL [Concomitant]
     Active Substance: CLOBETASOL
  3. ALBUTEROL                          /00139501/ [Concomitant]
     Active Substance: ALBUTEROL
  4. CLONAZEPAM. [Concomitant]
     Active Substance: CLONAZEPAM
  5. PREMARIN [Concomitant]
     Active Substance: ESTROGENS, CONJUGATED
  6. VITAMIN B12 [Concomitant]
     Active Substance: CYANOCOBALAMIN
  7. AMBRISENTAN [Suspect]
     Active Substance: AMBRISENTAN
     Indication: PULMONARY ARTERIAL HYPERTENSION
     Dosage: 5 MG, UNK
     Route: 065
     Dates: start: 201704, end: 20170517
  8. CYCLOBENZAPRIN [Concomitant]
     Active Substance: CYCLOBENZAPRINE
  9. FLUOXETINE [Concomitant]
     Active Substance: FLUOXETINE HYDROCHLORIDE

REACTIONS (6)
  - Arthralgia [Recovered/Resolved]
  - Vomiting [Unknown]
  - Systemic lupus erythematosus [Unknown]
  - Peripheral swelling [Not Recovered/Not Resolved]
  - Myalgia [Recovered/Resolved]
  - Fibromyalgia [Unknown]

NARRATIVE: CASE EVENT DATE: 20170503
